FAERS Safety Report 6745860-4 (Version None)
Quarter: 2010Q2

REPORT INFORMATION
  Report Type: 
  Country: None (occurrence: None)
  Receive Date: 20100528
  Receipt Date: 20100525
  Transmission Date: 20101027
  Serious: Yes (Death)
  Sender: FDA-Public Use
  Company Number: FR-BRISTOL-MYERS SQUIBB COMPANY-15119092

PATIENT

DRUGS (1)
  1. ELISOR TABS 20 MG [Suspect]
     Route: 064

REACTIONS (1)
  - INTRA-UTERINE DEATH [None]
